FAERS Safety Report 15237723 (Version 3)
Quarter: 2019Q2

REPORT INFORMATION
  Report Type: Spontaneous
  Country: DE (occurrence: DE)
  Receive Date: 20180803
  Receipt Date: 20190616
  Transmission Date: 20190711
  Serious: Yes (Hospitalization, Other)
  Sender: FDA-Public Use
  Company Number: PHHY2018DE060103

PATIENT
  Age: 62 Year
  Sex: Female

DRUGS (3)
  1. ABATACEPT [Suspect]
     Active Substance: ABATACEPT
     Indication: RHEUMATOID ARTHRITIS
     Dosage: 125 MG, QW
     Route: 058
     Dates: end: 20190415
  2. METHOTREXATE. [Suspect]
     Active Substance: METHOTREXATE
     Indication: RHEUMATOID ARTHRITIS
     Dosage: 20 MG, QW
     Route: 065
     Dates: end: 201610
  3. METHOTREXATE. [Suspect]
     Active Substance: METHOTREXATE
     Dosage: 7.5 MG, QW
     Route: 065
     Dates: end: 201903

REACTIONS (10)
  - Uterine prolapse [Unknown]
  - Skin ulcer [Unknown]
  - Nasopharyngitis [Unknown]
  - Vaginal prolapse [Not Recovered/Not Resolved]
  - Anaemia [Not Recovered/Not Resolved]
  - Influenza like illness [Unknown]
  - Rectocele [Not Recovered/Not Resolved]
  - Burns second degree [Unknown]
  - Carpal tunnel syndrome [Unknown]
  - Bladder prolapse [Not Recovered/Not Resolved]

NARRATIVE: CASE EVENT DATE: 201308
